FAERS Safety Report 12210390 (Version 1)
Quarter: 2016Q1

REPORT INFORMATION
  Report Type: Spontaneous
  Country: US (occurrence: None)
  Receive Date: 20160324
  Receipt Date: 20160324
  Transmission Date: 20160526
  Serious: No
  Sender: FDA-Public Use
  Company Number: None

PATIENT
  Age: 50 Year
  Sex: Female
  Weight: 68.04 kg

DRUGS (11)
  1. BOTOX [Suspect]
     Active Substance: ONABOTULINUMTOXINA
     Indication: DRUG THERAPY
     Dosage: QUARTERLY GIVEN INTO/UNDER THE SKIN
     Route: 058
  2. INDERALC [Concomitant]
  3. CALCIUM W/ VITAMIN D [Concomitant]
  4. ABILIFY [Concomitant]
     Active Substance: ARIPIPRAZOLE
  5. WELLBUTRIN [Concomitant]
     Active Substance: BUPROPION HYDROCHLORIDE
  6. NEURONTIN [Concomitant]
     Active Substance: GABAPENTIN
  7. KLONIPIN [Concomitant]
     Active Substance: CLONAZEPAM
  8. IMITREX [Concomitant]
     Active Substance: SUMATRIPTAN SUCCINATE
  9. PRESERVISION [Concomitant]
     Active Substance: MINERALS\VITAMINS
  10. PAXIL [Concomitant]
     Active Substance: PAROXETINE HYDROCHLORIDE
  11. PHENERGAN W/DILAUDID [Concomitant]

REACTIONS (8)
  - Head injury [None]
  - Musculoskeletal disorder [None]
  - Night sweats [None]
  - Migraine [None]
  - Neck pain [None]
  - Hot flush [None]
  - Urticaria [None]
  - Pruritus [None]

NARRATIVE: CASE EVENT DATE: 20151228
